FAERS Safety Report 16468866 (Version 3)
Quarter: 2019Q2

REPORT INFORMATION
  Report Type: Spontaneous
  Country: US (occurrence: US)
  Receive Date: 20190624
  Receipt Date: 20190627
  Transmission Date: 20190711
  Serious: No
  Sender: FDA-Public Use
  Company Number: US-PFIZER INC-2019267704

PATIENT
  Age: 12 Year
  Sex: Female

DRUGS (1)
  1. GENOTROPIN [Suspect]
     Active Substance: SOMATROPIN
     Dosage: 1 MG, UNK
     Dates: start: 201905

REACTIONS (4)
  - Injection site pain [Unknown]
  - Product dose omission [Unknown]
  - Injection site bruising [Unknown]
  - Wrong technique in device usage process [Unknown]
